FAERS Safety Report 6421058-4 (Version None)
Quarter: 2009Q4

REPORT INFORMATION
  Report Type: 
  Country: None (occurrence: None)
  Receive Date: 20091030
  Receipt Date: 20091008
  Transmission Date: 20100525
  Serious: Yes (Hospitalization, Other)
  Sender: FDA-Public Use
  Company Number: US-BAYER-200926629GPV

PATIENT
  Age: 63 Year
  Sex: Male
  Weight: 85 kg

DRUGS (31)
  1. CAMPATH [Suspect]
     Indication: CHRONIC LYMPHOCYTIC LEUKAEMIA
     Dosage: TOTAL DAILY DOSE: 30 MG
     Route: 058
     Dates: start: 20090615, end: 20090715
  2. CAMPATH [Suspect]
     Dosage: TOTAL DAILY DOSE: 30 MG
     Route: 058
     Dates: start: 20090727, end: 20090826
  3. VALCYTE [Concomitant]
     Indication: VIRAL TEST POSITIVE
     Dates: start: 20090717, end: 20090724
  4. BISEPTOL [Concomitant]
     Dates: start: 20090401
  5. HYDROCHLOROTHIAZIDE [Concomitant]
     Dates: start: 20090626, end: 20090828
  6. HYDROCHLOROTHIAZIDE [Concomitant]
     Dates: start: 20090901
  7. MILURIT [Concomitant]
     Dates: start: 20090614
  8. HELICID [Concomitant]
     Dates: start: 20090618
  9. DEGAN [Concomitant]
     Dates: start: 20090622
  10. ZOVIRAX [Concomitant]
     Indication: PROPHYLAXIS
     Dates: start: 20090614, end: 20090717
  11. ZOVIRAX [Concomitant]
     Dosage: AS USED: 400 MG
     Dates: start: 20090724
  12. URSOSAN [Concomitant]
  13. SUMETROLIM [Concomitant]
  14. CIPRINOL [Concomitant]
     Dates: start: 20090726, end: 20090726
  15. ZYRTEC [Concomitant]
  16. CIPHIN [Concomitant]
  17. OMEPRAZOLE [Concomitant]
     Dates: start: 20090618
  18. RED BLOOD CELLS [Concomitant]
     Dates: start: 20090723, end: 20090723
  19. RED BLOOD CELLS [Concomitant]
     Dates: start: 20090901, end: 20090901
  20. RED BLOOD CELLS [Concomitant]
     Dates: start: 20090828, end: 20090828
  21. RED BLOOD CELLS [Concomitant]
     Dates: start: 20090907, end: 20090907
  22. CETIRIZINE [Concomitant]
     Dates: start: 20090723, end: 20090723
  23. HYDROCORTISON [Concomitant]
     Dates: start: 20090831, end: 20090831
  24. FUROSEMID [Concomitant]
     Dates: start: 20090902, end: 20090906
  25. ETAMSILATE [Concomitant]
     Dates: start: 20090903, end: 20090903
  26. HYDROCHLOROTHIAZIDE [Concomitant]
     Dates: start: 20090901
  27. CALCIUM [Concomitant]
     Dates: start: 20090907, end: 20090901
  28. ALOPURINOL [Concomitant]
     Dates: start: 20090614, end: 20090720
  29. COTRIM [Concomitant]
     Indication: ANTIFUNGAL PROPHYLAXIS
     Route: 048
  30. MCP HEXAL [Concomitant]
     Dosage: TOTAL DAILY DOSE: 30 MG
  31. VALGANCICLOVIR HCL [Concomitant]
     Dates: start: 20090717, end: 20090724

REACTIONS (4)
  - BILE DUCT OBSTRUCTION [None]
  - CHOLANGITIS ACUTE [None]
  - HEPATIC FUNCTION ABNORMAL [None]
  - VIRAL TEST POSITIVE [None]
